FAERS Safety Report 4752601-9 (Version None)
Quarter: 2005Q3

REPORT INFORMATION
  Report Type: 
  Country: None (occurrence: None)
  Receive Date: 20050824
  Receipt Date: 20050811
  Transmission Date: 20060218
  Serious: Yes (Other)
  Sender: FDA-Public Use
  Company Number: 2005083925

PATIENT
  Age: 67 Year
  Sex: Male
  Weight: 77.1115 kg

DRUGS (8)
  1. VIAGRA [Suspect]
     Indication: ERECTILE DYSFUNCTION
     Dosage: (AS NECESSARY), ORAL
     Route: 048
     Dates: start: 20000101
  2. MEDROL [Concomitant]
  3. IMURAN [Concomitant]
  4. PROSCAR [Concomitant]
  5. CLARINEX [Concomitant]
  6. BENICAR [Concomitant]
  7. ACCUPRIL [Concomitant]
  8. CLARITIN [Concomitant]

REACTIONS (7)
  - ATRIAL FLUTTER [None]
  - BLOOD PRESSURE DECREASED [None]
  - OPTIC ISCHAEMIC NEUROPATHY [None]
  - OPTIC NERVE DISORDER [None]
  - OPTIC NEUROPATHY [None]
  - RETINITIS [None]
  - VISUAL FIELD DEFECT [None]
